FAERS Safety Report 8176278-8 (Version None)
Quarter: 2012Q1

REPORT INFORMATION
  Report Type: 
  Country: None (occurrence: None)
  Receive Date: 20120227
  Receipt Date: 20120227
  Transmission Date: 20120608
  Serious: Yes (Other)
  Sender: FDA-Public Use
  Company Number: None

PATIENT
  Age: 30 Year
  Sex: Male
  Weight: 58.9676 kg

DRUGS (2)
  1. XANAX [Suspect]
     Indication: ABNORMAL BEHAVIOUR
     Dosage: ONE TID
  2. XANAX [Suspect]
     Indication: ANXIETY
     Dosage: ONE TID

REACTIONS (1)
  - ABNORMAL BEHAVIOUR [None]
